FAERS Safety Report 14664782 (Version 1)
Quarter: 2018Q1

REPORT INFORMATION
  Report Type: Spontaneous
  Country: GB (occurrence: GB)
  Receive Date: 20180321
  Receipt Date: 20180321
  Transmission Date: 20180509
  Serious: Yes (Other)
  Sender: FDA-Public Use
  Company Number: GB-TEVA-2018-GB-871333

PATIENT
  Age: 52 Year
  Sex: Female

DRUGS (10)
  1. EPILIM [Concomitant]
     Active Substance: VALPROATE SODIUM
     Dosage: 4 DOSAGE FORMS DAILY;
  2. LYMECYCLINE [Concomitant]
     Active Substance: LYMECYCLINE
     Dosage: 1 DOSAGE FORMS DAILY;
  3. TRIMETHOPRIM. [Concomitant]
     Active Substance: TRIMETHOPRIM
     Dosage: 2 DOSAGE FORMS DAILY;
  4. CARBAMAZEPINE. [Suspect]
     Active Substance: CARBAMAZEPINE
     Route: 065
  5. BACLOFEN. [Concomitant]
     Active Substance: BACLOFEN
     Dosage: 10.5 DOSAGE FORMS DAILY;  1/2 TABLET AT NIGHT
  6. DIPROBASE [Concomitant]
     Active Substance: CHLOROCRESOL
     Dosage: APPLY
  7. FLUCLOXACILLIN [Concomitant]
     Active Substance: FLUCLOXACILLIN
     Dosage: 4 DOSAGE FORMS DAILY;
  8. CLARITHROMYCIN. [Concomitant]
     Active Substance: CLARITHROMYCIN
     Dosage: 2 DOSAGE FORMS DAILY;
  9. BISOPROLOL [Concomitant]
     Active Substance: BISOPROLOL
     Dosage: 1 DOSAGE FORMS DAILY; EACH MORNING
  10. SUMATRIPTAN. [Concomitant]
     Active Substance: SUMATRIPTAN
     Dosage: AS DIRECTED

REACTIONS (1)
  - Drug intolerance [Recovered/Resolved]
